FAERS Safety Report 8699125 (Version 2)
Quarter: 2012Q4

REPORT INFORMATION
  Report Type: 
  Country: US (occurrence: US)
  Receive Date: 20120802
  Receipt Date: 20121012
  Transmission Date: 20130627
  Serious: Yes (Other)
  Sender: FDA-Public Use
  Company Number: US-ASTRAZENECA-2012SE52544

PATIENT
  Age: 50 Year
  Sex: Male

DRUGS (1)
  1. SEROQUEL [Suspect]
     Route: 048

REACTIONS (4)
  - Suicidal ideation [Unknown]
  - Mood swings [Unknown]
  - Insomnia [Unknown]
  - Drug dose omission [Unknown]
